FAERS Safety Report 26140239 (Version 1)
Quarter: 2025Q4

REPORT INFORMATION
  Report Type: Spontaneous
  Country: US (occurrence: US)
  Receive Date: 20251210
  Receipt Date: 20251210
  Transmission Date: 20260118
  Serious: Yes (Other)
  Sender: STALLERGENES
  Company Number: US-STALCOR-2025-AER-03265

PATIENT
  Age: 39 Year
  Sex: Female

DRUGS (42)
  1. STANDARDIZED CAT HAIR [Suspect]
     Active Substance: FELIS CATUS HAIR
     Indication: Product used for unknown indication
     Route: 058
     Dates: start: 20111025
  2. SHORT AND GIANT RAGWEED POLLEN MIX [Suspect]
     Active Substance: AMBROSIA ARTEMISIIFOLIA POLLEN\AMBROSIA TRIFIDA POLLEN
     Indication: Product used for unknown indication
     Dates: start: 20111025
  3. STANDARDIZED MITE DERMATOPHAGOIDES FARINAE [Suspect]
     Active Substance: DERMATOPHAGOIDES FARINAE
     Indication: Product used for unknown indication
     Dates: start: 20111025
  4. STANDARDIZED MITE DERMATOPHAGOIDES PTERONYSSINUS [Suspect]
     Active Substance: DERMATOPHAGOIDES PTERONYSSINUS
     Indication: Product used for unknown indication
     Dates: start: 20111025
  5. AMERICAN SYCAMORE POLLEN [Suspect]
     Active Substance: PLATANUS OCCIDENTALIS POLLEN
     Indication: Product used for unknown indication
     Dates: start: 20111025
  6. WHITE ASH POLLEN [Suspect]
     Active Substance: FRAXINUS AMERICANA POLLEN
     Indication: Product used for unknown indication
     Dates: start: 20111025
  7. AMERICAN ELM POLLEN [Suspect]
     Active Substance: ULMUS AMERICANA POLLEN
     Indication: Product used for unknown indication
     Dates: start: 20111025
  8. EASTERN OAK POLLEN MIX [Suspect]
     Active Substance: QUERCUS ALBA POLLEN\QUERCUS RUBRA POLLEN\QUERCUS VELUTINA POLLEN
     Indication: Product used for unknown indication
     Dates: start: 20111025
  9. BIRCH POLLEN MIX [Suspect]
     Active Substance: BETULA LENTA POLLEN\BETULA NIGRA POLLEN\BETULA POPULIFOLIA POLLEN
     Indication: Product used for unknown indication
     Dates: start: 20111025
  10. MAPLE-BOX ELDER POLLEN MIX [Suspect]
     Active Substance: ACER NEGUNDO POLLEN\ACER SACCHARUM POLLEN
     Indication: Product used for unknown indication
     Dates: start: 20111025
  11. EASTERN COTTONWOOD POLLEN [Suspect]
     Active Substance: POPULUS DELTOIDES POLLEN
     Indication: Product used for unknown indication
     Dates: start: 20111025
  12. SWEETGUM POLLEN [Suspect]
     Active Substance: LIQUIDAMBAR STYRACIFLUA POLLEN
     Indication: Product used for unknown indication
     Dates: start: 20111025
  13. AMERICAN BEECH POLLEN [Suspect]
     Active Substance: FAGUS GRANDIFOLIA POLLEN
     Indication: Product used for unknown indication
     Dates: start: 20111025
  14. SHAGBARK HICKORY POLLEN [Suspect]
     Active Substance: CARYA OVATA POLLEN
     Indication: Product used for unknown indication
     Dates: start: 20111025
  15. ROUGH REDROOT PIGWEED POLLEN [Suspect]
     Active Substance: AMARANTHUS RETROFLEXUS POLLEN
     Indication: Product used for unknown indication
     Dates: start: 20111025
  16. TRUE ROUGH MARSH ELDER [Suspect]
     Active Substance: IVA ANNUA POLLEN
     Indication: Product used for unknown indication
     Dates: start: 20111025
  17. LAMB QUARTERS [Suspect]
     Active Substance: CHENOPODIUM ALBUM POLLEN
     Indication: Product used for unknown indication
     Dates: start: 20111025
  18. COCKLEBUR POLLEN [Suspect]
     Active Substance: XANTHIUM STRUMARIUM POLLEN
     Indication: Product used for unknown indication
     Dates: start: 20111025
  19. ENGLISH PLANTAIN POLLEN [Suspect]
     Active Substance: PLANTAGO LANCEOLATA POLLEN
     Indication: Product used for unknown indication
     Dates: start: 20111025
  20. ASPERGILLUS MIX [Suspect]
     Active Substance: ASPERGILLUS FLAVUS\ASPERGILLUS FUMIGATUS\ASPERGILLUS NIDULANS\ASPERGILLUS NIGER VAR. NIGER\EUROTIUM
     Indication: Product used for unknown indication
     Dates: start: 20111025
  21. ALTERNARIA ALTERNATA [Suspect]
     Active Substance: ALTERNARIA ALTERNATA
     Indication: Product used for unknown indication
     Dates: start: 20111025
  22. NETTLE POLLEN [Suspect]
     Active Substance: URTICA DIOICA POLLEN
     Indication: Product used for unknown indication
     Dates: start: 20111025
  23. SHEEP RED SORREL [Suspect]
     Active Substance: RUMEX ACETOSELLA POLLEN
     Indication: Product used for unknown indication
     Dates: start: 20111025
  24. MUCOR MIX [Suspect]
     Active Substance: MUCOR CIRCINELLOIDES F. LUSITANICUS\MUCOR PLUMBEUS
     Indication: Product used for unknown indication
     Dates: start: 20111025
  25. CLADOSPORIUM SPHAEROSPERMUM [Suspect]
     Active Substance: CLADOSPORIUM SPHAEROSPERMUM
     Indication: Product used for unknown indication
     Dates: start: 20111025
  26. BIPOLARIS SOROKINIANA [Suspect]
     Active Substance: COCHLIOBOLUS SATIVUS
     Indication: Product used for unknown indication
     Dates: start: 20111025
  27. FUSARIUM MIX [Suspect]
     Active Substance: GIBBERELLA FUJIKUROI\HAEMATONECTRIA HAEMATOCOCCA
     Indication: Product used for unknown indication
     Dates: start: 20111025
  28. EPICOCCUM NIGRUM [Suspect]
     Active Substance: EPICOCCUM NIGRUM
     Indication: Product used for unknown indication
     Dates: start: 20111025
  29. CURVULARIA SPICIFERA [Suspect]
     Active Substance: COCHLIOBOLUS SPICIFER
     Indication: Product used for unknown indication
     Dates: start: 20111025
  30. PHOMA BETAE [Suspect]
     Active Substance: PLEOSPORA BETAE
     Indication: Product used for unknown indication
     Dates: start: 20111025
  31. RHIZOPUS MIX [Suspect]
     Active Substance: RHIZOPUS ARRHIZUS\RHIZOPUS STOLONIFER
     Indication: Product used for unknown indication
     Dates: start: 20111025
  32. AUREOBASIDIUM PULLULANS [Suspect]
     Active Substance: AUREOBASIDIUM PULLULANS VAR. PULLUTANS
     Indication: Product used for unknown indication
     Dates: start: 20111025
  33. PENICILLIUM MIX [Suspect]
     Active Substance: PENICILLIUM CAMEMBERTI\PENICILLIUM CHRYSOGENUM VAR. CHRYSOGENUM\PENICILLIUM DIGITATUM\PENICILLIUM RO
     Indication: Product used for unknown indication
     Dates: start: 20111025
  34. GUINEA PIG EPITHELIA [Suspect]
     Active Substance: CAVIA PORCELLUS SKIN
     Indication: Product used for unknown indication
     Dates: start: 20111025
  35. MOUSE EPITHELIA [Suspect]
     Active Substance: MUS MUSCULUS SKIN
     Indication: Product used for unknown indication
     Dates: start: 20111025
  36. HORSE EPITHELIA [Suspect]
     Active Substance: EQUUS CABALLUS SKIN
     Indication: Product used for unknown indication
     Dates: start: 20111025
  37. HAMSTER EPITHELIA [Suspect]
     Active Substance: MESOCRICETUS AURATUS SKIN
     Indication: Product used for unknown indication
     Dates: start: 20111025
  38. RABBIT EPITHELIA [Suspect]
     Active Substance: ORYCTOLAGUS CUNICULUS SKIN
     Indication: Product used for unknown indication
     Dates: start: 20111025
  39. EASTERN 10 TREE POLLEN MIX [Suspect]
     Active Substance: ACER SACCHARUM POLLEN\BETULA NIGRA POLLEN\CARYA OVATA POLLEN\FAGUS GRANDIFOLIA POLLEN\FRAXINUS AMERI
     Indication: Product used for unknown indication
     Dates: start: 20111025
  40. DOG EPITHELIA [Suspect]
     Active Substance: CANIS LUPUS FAMILIARIS SKIN
     Indication: Product used for unknown indication
     Dates: start: 20111025
  41. 2 COCKROACH MIX [Suspect]
     Active Substance: BLATTELLA GERMANICA\PERIPLANETA AMERICANA
     Indication: Product used for unknown indication
     Dates: start: 20111025
  42. MIXED FEATHERS [Suspect]
     Active Substance: ANAS PLATYRHYNCHOS FEATHER\ANSER ANSER FEATHER\GALLUS GALLUS FEATHER
     Indication: Product used for unknown indication
     Dates: start: 20111025

REACTIONS (4)
  - Hypersensitivity [Recovered/Resolved]
  - Cough [Recovered/Resolved]
  - Throat clearing [Recovered/Resolved]
  - Pruritus [Recovered/Resolved]

NARRATIVE: CASE EVENT DATE: 20111025
